FAERS Safety Report 9239806 (Version 1)
Quarter: 2013Q2

REPORT INFORMATION
  Report Type: Spontaneous
  Country: US (occurrence: US)
  Receive Date: 20130418
  Receipt Date: 20130418
  Transmission Date: 20140414
  Serious: Yes (Other)
  Sender: FDA-Public Use
  Company Number: US-SANOFI-AVENTIS-2012SA024759

PATIENT
  Sex: Male

DRUGS (4)
  1. LOVENOX [Suspect]
     Route: 065
  2. ASPIRIN [Suspect]
  3. METOPROLOL TARTRATE [Suspect]
  4. AMLODIPINE BESILATE [Suspect]

REACTIONS (2)
  - Haemorrhage [Unknown]
  - Red blood cell count decreased [Unknown]
